FAERS Safety Report 13500898 (Version 4)
Quarter: 2019Q2

REPORT INFORMATION
  Report Type: Spontaneous
  Country: US (occurrence: US)
  Receive Date: 20170501
  Receipt Date: 20190509
  Transmission Date: 20190711
  Serious: No
  Sender: FDA-Public Use
  Company Number: US-ROCHE-1826566

PATIENT
  Sex: Female

DRUGS (7)
  1. METFORMIN [Concomitant]
     Active Substance: METFORMIN HYDROCHLORIDE
     Route: 065
  2. ROSUVASTATIN CALCIUM. [Concomitant]
     Active Substance: ROSUVASTATIN CALCIUM
  3. NATEGLINIDE. [Concomitant]
     Active Substance: NATEGLINIDE
  4. LOSARTAN. [Concomitant]
     Active Substance: LOSARTAN
  5. TRADJENTA [Concomitant]
     Active Substance: LINAGLIPTIN
  6. ESBRIET [Suspect]
     Active Substance: PIRFENIDONE
     Indication: IDIOPATHIC PULMONARY FIBROSIS
     Route: 048
  7. PIOGLITAZONE. [Concomitant]
     Active Substance: PIOGLITAZONE

REACTIONS (5)
  - Dizziness [Unknown]
  - Nausea [Unknown]
  - Vomiting [Unknown]
  - Bacterial infection [Unknown]
  - Diarrhoea [Unknown]
